FAERS Safety Report 7217623-7 (Version None)
Quarter: 2011Q1

REPORT INFORMATION
  Report Type: 
  Country: None (occurrence: None)
  Receive Date: 20110110
  Receipt Date: 20101230
  Transmission Date: 20110831
  Serious: Yes (Other)
  Sender: FDA-Public Use
  Company Number: DE-ROCHE-749291

PATIENT
  Age: 63 Year
  Sex: Female

DRUGS (3)
  1. AVASTIN [Suspect]
     Dosage: 3RD LINE THERAPY
     Route: 065
     Dates: start: 20101129
  2. FLUOROURACIL [Suspect]
     Dosage: 3RD LINE THERAPY
     Route: 065
     Dates: start: 20101129
  3. CEPHALOSPORIN [Concomitant]

REACTIONS (2)
  - WOUND NECROSIS [None]
  - VASCULITIS [None]
